FAERS Safety Report 15575836 (Version 17)
Quarter: 2019Q3

REPORT INFORMATION
  Report Type: Spontaneous
  Country: CA (occurrence: CA)
  Receive Date: 20181101
  Receipt Date: 20190919
  Transmission Date: 20191004
  Serious: Yes (Hospitalization, Other)
  Sender: FDA-Public Use
  Company Number: CA-CELLTRION INC.-2018CA019532

PATIENT

DRUGS (33)
  1. INFLECTRA [Suspect]
     Active Substance: INFLIXIMAB-DYYB
     Dosage: 1000MG EVERY 6 WEEKS
     Route: 042
     Dates: start: 20190508
  2. FOLIC ACID. [Concomitant]
     Active Substance: FOLIC ACID
     Dosage: 1 MG, (6 DAYS A WEEK, NOT TO BE TAKEN ON THE DAY OF METHOTREXATE)
  3. SOLU-MEDROL [Concomitant]
     Active Substance: METHYLPREDNISOLONE SODIUM SUCCINATE
     Dosage: UNK
     Route: 042
     Dates: start: 2018, end: 2018
  4. CODEINE [Concomitant]
     Active Substance: CODEINE
     Dosage: UNK
  5. INFLECTRA [Suspect]
     Active Substance: INFLIXIMAB-DYYB
     Dosage: 1000MG EVERY 6 WEEKS
     Route: 042
     Dates: start: 20190821
  6. PREDNISONE. [Concomitant]
     Active Substance: PREDNISONE
     Dosage: 12.5 MG, UNK
     Dates: start: 201803
  7. PREDNISONE. [Concomitant]
     Active Substance: PREDNISONE
     Dosage: 30MG TAPERING DOSE
     Dates: start: 20181102
  8. FENTANYL. [Concomitant]
     Active Substance: FENTANYL
     Indication: ANAESTHESIA
     Dosage: 50 UG, UNK (50 MCG)
     Dates: start: 20180401, end: 20180401
  9. INFLECTRA [Suspect]
     Active Substance: INFLIXIMAB-DYYB
     Dosage: 1000MG EVERY 4 WEEKS
     Route: 042
     Dates: start: 20190115
  10. VITAMIN D [ERGOCALCIFEROL] [Concomitant]
     Active Substance: ERGOCALCIFEROL
     Indication: VITAMIN SUPPLEMENTATION
     Dosage: UNK
  11. ALENDRONATE [Concomitant]
     Active Substance: ALENDRONATE SODIUM
     Dosage: 70 MG, WEEKLY
  12. IBUPROFEN. [Concomitant]
     Active Substance: IBUPROFEN
     Dosage: EXTRA STRENGTH 1-2 TABLETS Q.3-6H
  13. METHOTREXATE. [Concomitant]
     Active Substance: METHOTREXATE
     Dosage: 15 MG, WEEKLY,WEEKLY ON FRIDAYS IMMEDIATELY BEFORE BEDTIME
     Route: 048
  14. FLOVENT [Concomitant]
     Active Substance: FLUTICASONE PROPIONATE
     Indication: PNEUMONITIS
  15. INFLECTRA [Suspect]
     Active Substance: INFLIXIMAB-DYYB
     Indication: CROHN^S DISEASE
     Dosage: 1000 MG, DIVIDED IN 2 DOSES OF 500MG
     Route: 042
     Dates: start: 20180401, end: 20180401
  16. PREDNISONE. [Concomitant]
     Active Substance: PREDNISONE
     Dosage: 60 MG, UNK
     Dates: start: 201803
  17. CALCIUM [Concomitant]
     Active Substance: CALCIUM
     Indication: VITAMIN SUPPLEMENTATION
     Dosage: UNK
  18. RABEPRAZOLE [Concomitant]
     Active Substance: RABEPRAZOLE
     Indication: GASTROOESOPHAGEAL REFLUX DISEASE
     Dosage: 20 MG, DAILY
  19. FLOVENT [Concomitant]
     Active Substance: FLUTICASONE PROPIONATE
     Indication: PNEUMONITIS
     Dosage: 1 OR 2 PUFFS PER DAY
  20. INFLECTRA [Suspect]
     Active Substance: INFLIXIMAB-DYYB
     Dosage: 1000 MG EVERY 2, 6 WEEKS, THEN EVERY 8 WEEKS
     Route: 042
     Dates: start: 20180515
  21. INFLECTRA [Suspect]
     Active Substance: INFLIXIMAB-DYYB
     Dosage: 1000MG EVERY 6 WEEKS
     Route: 042
     Dates: start: 20190619
  22. INFLECTRA [Suspect]
     Active Substance: INFLIXIMAB-DYYB
     Dosage: 1000 MG EVERY 2, 6 WEEKS, THEN EVERY 8 WEEKS
     Route: 042
     Dates: start: 20180904, end: 20180904
  23. INFLECTRA [Suspect]
     Active Substance: INFLIXIMAB-DYYB
     Dosage: 1000 MG, EVERY 6 WEEKS
     Route: 042
     Dates: start: 20181023, end: 20181023
  24. INFLECTRA [Suspect]
     Active Substance: INFLIXIMAB-DYYB
     Dosage: 1000MG EVERY 4 WEEKS
     Route: 042
     Dates: start: 20181126
  25. INFLECTRA [Suspect]
     Active Substance: INFLIXIMAB-DYYB
     Dosage: 1000MG EVERY 4 WEEKS
     Route: 042
     Dates: start: 20181218
  26. INFLECTRA [Suspect]
     Active Substance: INFLIXIMAB-DYYB
     Dosage: 1000MG EVERY 4 WEEKS
     Route: 042
     Dates: start: 20190325, end: 20190325
  27. RAMIPRIL. [Concomitant]
     Active Substance: RAMIPRIL
     Indication: HYPERTENSION
     Dosage: 2.5 MG, 1X/DAY
  28. INFLECTRA [Suspect]
     Active Substance: INFLIXIMAB-DYYB
     Dosage: 1000MG EVERY 4 WEEKS
     Route: 042
     Dates: start: 20190219
  29. FLUTICASONE PROPRIONATE [Concomitant]
     Active Substance: FLUTICASONE PROPIONATE
     Dosage: 1 PUFF TWICE DAILY
  30. SULFASALAZINE. [Concomitant]
     Active Substance: SULFASALAZINE
     Dosage: UNK
  31. INFLECTRA [Suspect]
     Active Substance: INFLIXIMAB-DYYB
     Dosage: 1000 MG, DIVIDED IN 2 DOSES OF 500MG
     Route: 042
     Dates: start: 20180403, end: 20180403
  32. PREDNISONE. [Concomitant]
     Active Substance: PREDNISONE
     Dosage: 15 MG, UNK
     Dates: start: 201803
  33. METRONIDAZOLE. [Concomitant]
     Active Substance: METRONIDAZOLE
     Dosage: UNK

REACTIONS (17)
  - Haematochezia [Unknown]
  - Atrioventricular block complete [Unknown]
  - Weight increased [Unknown]
  - Gastrointestinal motility disorder [Unknown]
  - Colon cancer [Not Recovered/Not Resolved]
  - Large intestinal obstruction [Unknown]
  - Infusion site extravasation [Recovered/Resolved]
  - Drug level decreased [Recovered/Resolved]
  - Product use issue [Unknown]
  - Drug level increased [Unknown]
  - Gastrointestinal pain [Recovering/Resolving]
  - Off label use [Unknown]
  - Hepatic cancer [Recovered/Resolved]
  - Pneumonia [Unknown]
  - Condition aggravated [Not Recovered/Not Resolved]
  - Blood pressure fluctuation [Unknown]
  - Heart rate irregular [Unknown]

NARRATIVE: CASE EVENT DATE: 20180401
